FAERS Safety Report 10448691 (Version 1)
Quarter: 2014Q3

REPORT INFORMATION
  Report Type: Spontaneous
  Country: US (occurrence: US)
  Receive Date: 20140912
  Receipt Date: 20140912
  Transmission Date: 20150326
  Serious: Yes (Other)
  Sender: FDA-Public Use
  Company Number: US-TEVA-491344USA

PATIENT
  Age: 31 Year
  Sex: Female

DRUGS (1)
  1. QUININE SULFATE. [Suspect]
     Active Substance: QUININE SULFATE

REACTIONS (3)
  - Pharyngeal oedema [Unknown]
  - Drug hypersensitivity [Unknown]
  - Dyspnoea [Unknown]
